FAERS Safety Report 6267508-8 (Version None)
Quarter: 2009Q3

REPORT INFORMATION
  Report Type: 
  Country: None (occurrence: None)
  Receive Date: 20090714
  Receipt Date: 20090703
  Transmission Date: 20100115
  Serious: Yes (Death, Hospitalization)
  Sender: FDA-Public Use
  Company Number: FR-MERCK-0907FRA00016

PATIENT
  Age: 80 Year
  Sex: Female

DRUGS (7)
  1. VYTORIN [Suspect]
     Indication: HYPERCHOLESTEROLAEMIA
     Route: 065
     Dates: start: 20060101
  2. ASPIRIN LYSINE [Concomitant]
     Route: 065
  3. CLOPIDOGREL BISULFATE [Concomitant]
     Route: 065
  4. BISOPROLOL FUMARATE [Concomitant]
     Route: 065
  5. FUROSEMIDE [Concomitant]
     Route: 065
  6. PERINDOPRIL ARGININE [Concomitant]
     Route: 065
  7. NICORANDIL [Concomitant]
     Route: 065

REACTIONS (1)
  - HEPATITIS [None]
